FAERS Safety Report 8076124-7 (Version None)
Quarter: 2012Q1

REPORT INFORMATION
  Report Type: 
  Country: None (occurrence: None)
  Receive Date: 20120127
  Receipt Date: 20111005
  Transmission Date: 20120608
  Serious: No
  Sender: FDA-Public Use
  Company Number: US-GLAXOSMITHKLINE-A0947544A

PATIENT
  Sex: Female

DRUGS (5)
  1. DITROPAN [Concomitant]
  2. PAROXETINE [Suspect]
     Indication: DEPRESSION
     Dosage: 75MG PER DAY
     Route: 048
     Dates: start: 20100101, end: 20110913
  3. BENICAR [Concomitant]
  4. WELLBUTRIN [Suspect]
     Indication: DEPRESSION
     Route: 048
     Dates: start: 20110809, end: 20110902
  5. LODINE [Concomitant]

REACTIONS (7)
  - CONDITION AGGRAVATED [None]
  - BLOOD PRESSURE INCREASED [None]
  - DEPRESSION [None]
  - DYSPNOEA [None]
  - DRUG INEFFECTIVE [None]
  - ANXIETY [None]
  - PANIC ATTACK [None]
